FAERS Safety Report 9087873 (Version 5)
Quarter: 2014Q2

REPORT INFORMATION
  Report Type: Spontaneous
  Country: US (occurrence: US)
  Receive Date: 20130218
  Receipt Date: 20140408
  Transmission Date: 20141212
  Serious: Yes (Death, Hospitalization, Disabling, Other)
  Sender: FDA-Public Use
  Company Number: US-009507513-1302USA007246

PATIENT
  Sex: Female
  Weight: 63.49 kg

DRUGS (3)
  1. JANUVIA [Suspect]
     Indication: TYPE 2 DIABETES MELLITUS
     Dosage: 100 MG, QD
     Route: 048
     Dates: start: 20100309, end: 201102
  2. METFORMIN [Concomitant]
     Indication: TYPE 2 DIABETES MELLITUS
  3. GLIMEPIRIDE [Concomitant]
     Indication: TYPE 2 DIABETES MELLITUS

REACTIONS (9)
  - Pancreatic carcinoma metastatic [Fatal]
  - Arrhythmia [Fatal]
  - Metastases to liver [Unknown]
  - Nephrolithiasis [Unknown]
  - Haemangioma of bone [Unknown]
  - Hepatitis [Unknown]
  - Diverticulum [Unknown]
  - Liver function test abnormal [Unknown]
  - Abdominal pain [Unknown]
